FAERS Safety Report 5030965-9 (Version None)
Quarter: 2006Q2

REPORT INFORMATION
  Report Type: 
  Country: None (occurrence: None)
  Receive Date: 20060621
  Receipt Date: 20060614
  Transmission Date: 20061013
  Serious: Yes (Hospitalization)
  Sender: FDA-Public Use
  Company Number: US-JNJFOC-20060603688

PATIENT
  Sex: Female

DRUGS (3)
  1. PANCREASE MT 16 [Suspect]
     Indication: DRUG USE FOR UNKNOWN INDICATION
  2. LOTRONEX [Suspect]
     Indication: DRUG USE FOR UNKNOWN INDICATION
  3. PREDNISONE [Suspect]
     Indication: DRUG USE FOR UNKNOWN INDICATION

REACTIONS (1)
  - INTESTINAL PERFORATION [None]
